FAERS Safety Report 23143036 (Version 1)
Quarter: 2023Q4

REPORT INFORMATION
  Report Type: Spontaneous
  Country: US (occurrence: None)
  Receive Date: 20231103
  Receipt Date: 20231103
  Transmission Date: 20240110
  Serious: Yes (Other)
  Sender: FDA-Public Use
  Company Number: None

PATIENT
  Age: 60 Year
  Sex: Female
  Weight: 58.5 kg

DRUGS (1)
  1. LUBRICANT EYE DROPS [Suspect]
     Active Substance: POLYETHYLENE GLYCOL 400\PROPYLENE GLYCOL
     Indication: Dry eye
     Dosage: OTHER QUANTITY : 2 DROP(S);?FREQUENCY : AS NEEDED;?
     Route: 047
     Dates: start: 20231031, end: 20231101

REACTIONS (3)
  - Ocular hyperaemia [None]
  - Eyelid margin crusting [None]
  - Vision blurred [None]

NARRATIVE: CASE EVENT DATE: 20231031
